FAERS Safety Report 6727752-X (Version None)
Quarter: 2010Q2

REPORT INFORMATION
  Report Type: 
  Country: None (occurrence: None)
  Receive Date: 20100517
  Receipt Date: 20100506
  Transmission Date: 20101027
  Serious: Yes (Hospitalization)
  Sender: FDA-Public Use
  Company Number: JP-ROCHE-702722

PATIENT
  Sex: Female
  Weight: 47 kg

DRUGS (18)
  1. TOCILIZUMAB [Suspect]
     Indication: RHEUMATOID ARTHRITIS
     Route: 041
     Dates: start: 20081225, end: 20081225
  2. TOCILIZUMAB [Suspect]
     Route: 041
     Dates: start: 20090126, end: 20090126
  3. TOCILIZUMAB [Suspect]
     Route: 041
     Dates: start: 20090223, end: 20090223
  4. TOCILIZUMAB [Suspect]
     Route: 041
     Dates: start: 20090319, end: 20090319
  5. TOCILIZUMAB [Suspect]
     Route: 041
     Dates: start: 20090416, end: 20090416
  6. TOCILIZUMAB [Suspect]
     Route: 041
     Dates: start: 20090514, end: 20090514
  7. TOCILIZUMAB [Suspect]
     Route: 041
     Dates: start: 20090611
  8. PREDNISOLONE [Suspect]
     Indication: RHEUMATOID ARTHRITIS
     Dosage: FORM: PERORAL AGENT
     Route: 048
     Dates: start: 20080926, end: 20081016
  9. PREDNISOLONE [Suspect]
     Route: 048
     Dates: start: 20081017, end: 20081030
  10. PREDNISOLONE [Suspect]
     Route: 048
     Dates: start: 20081031, end: 20081113
  11. PREDNISOLONE [Suspect]
     Route: 048
     Dates: start: 20081114, end: 20081204
  12. PREDNISOLONE [Suspect]
     Route: 048
     Dates: start: 20081205, end: 20081211
  13. PREDNISOLONE [Suspect]
     Route: 048
     Dates: start: 20081212, end: 20081218
  14. PREDNISOLONE [Suspect]
     Route: 048
     Dates: start: 20081219, end: 20090126
  15. PREDNISOLONE [Suspect]
     Route: 048
     Dates: start: 20090127, end: 20090223
  16. PREDNISOLONE [Suspect]
     Route: 048
     Dates: start: 20090224, end: 20090318
  17. PREDNISOLONE [Suspect]
     Route: 048
     Dates: start: 20090319, end: 20090415
  18. PREDNISOLONE [Suspect]
     Route: 048
     Dates: start: 20090416

REACTIONS (2)
  - CHEST X-RAY ABNORMAL [None]
  - PERICARDIAL EFFUSION [None]
